FAERS Safety Report 13067412 (Version 2)
Quarter: 2016Q4

REPORT INFORMATION
  Report Type: Report from Study
  Country: JP (occurrence: JP)
  Receive Date: 20161228
  Receipt Date: 20161230
  Transmission Date: 20170207
  Serious: Yes (Other)
  Sender: FDA-Public Use
  Company Number: JP-ROCHE-1871159

PATIENT

DRUGS (5)
  1. FLUOROURACIL. [Suspect]
     Active Substance: FLUOROURACIL
     Dosage: ON DAY 1-2
     Route: 042
  2. OXALIPLATIN. [Suspect]
     Active Substance: OXALIPLATIN
     Indication: COLORECTAL CANCER
     Route: 065
  3. LEUCOVORIN. [Suspect]
     Active Substance: LEUCOVORIN
     Indication: COLORECTAL CANCER
     Route: 065
  4. CAPECITABINE. [Suspect]
     Active Substance: CAPECITABINE
     Indication: COLORECTAL CANCER
     Route: 065
  5. FLUOROURACIL. [Suspect]
     Active Substance: FLUOROURACIL
     Indication: COLORECTAL CANCER
     Dosage: ON DAY 1
     Route: 040

REACTIONS (12)
  - Thrombocytopenia [Unknown]
  - Stomatitis [Unknown]
  - Alanine aminotransferase increased [Unknown]
  - Palmar-plantar erythrodysaesthesia syndrome [Unknown]
  - Nausea [Unknown]
  - Peripheral sensory neuropathy [Unknown]
  - Blood alkaline phosphatase abnormal [Unknown]
  - Diarrhoea [Unknown]
  - Blood creatinine increased [Unknown]
  - Peripheral motor neuropathy [Unknown]
  - Neutropenia [Unknown]
  - Decreased appetite [Unknown]
